FAERS Safety Report 4935374-6 (Version None)
Quarter: 2006Q1

REPORT INFORMATION
  Report Type: 
  Country: None (occurrence: None)
  Receive Date: 20060307
  Receipt Date: 20050722
  Transmission Date: 20060701
  Serious: No
  Sender: FDA-Public Use
  Company Number: US-GLAXOSMITHKLINE-A0567271A

PATIENT
  Age: 74 Year
  Sex: Female

DRUGS (6)
  1. REQUIP [Suspect]
     Indication: PARKINSON'S DISEASE
     Dosage: .25MG AT NIGHT
     Route: 048
     Dates: start: 20050720, end: 20050730
  2. SINEMET [Suspect]
     Indication: DRUG USE FOR UNKNOWN INDICATION
     Route: 065
  3. AMANTADINE HCL [Concomitant]
  4. TRANXENE [Concomitant]
  5. LIPITOR [Concomitant]
  6. STALEVO 100 [Concomitant]

REACTIONS (1)
  - TREMOR [None]
